FAERS Safety Report 4781898-4 (Version None)
Quarter: 2005Q3

REPORT INFORMATION
  Report Type: 
  Country: None (occurrence: None)
  Receive Date: 20050927
  Receipt Date: 20050915
  Transmission Date: 20060218
  Serious: Yes (Other)
  Sender: FDA-Public Use
  Company Number: 2005069134

PATIENT
  Age: 78 Year
  Sex: Female
  Weight: 54.4316 kg

DRUGS (5)
  1. BEXTRA [Suspect]
     Indication: PAIN
     Dates: start: 20050328, end: 20050330
  2. ATIVAN [Concomitant]
  3. ZYRTEC [Concomitant]
  4. ATENOLOL [Concomitant]
  5. AMBIEN [Concomitant]

REACTIONS (16)
  - BLOOD PRESSURE FLUCTUATION [None]
  - DEAFNESS TRANSITORY [None]
  - DEAFNESS UNILATERAL [None]
  - FEELING COLD [None]
  - HEADACHE [None]
  - HEART RATE INCREASED [None]
  - HYPOVENTILATION [None]
  - INCOHERENT [None]
  - INTUSSUSCEPTION [None]
  - MALAISE [None]
  - RASH [None]
  - RASH MACULO-PAPULAR [None]
  - SWELLING [None]
  - SWELLING FACE [None]
  - TREMOR [None]
  - URTICARIA [None]
